FAERS Safety Report 8092102-6 (Version None)
Quarter: 2012Q1

REPORT INFORMATION
  Report Type: 
  Country: None (occurrence: None)
  Receive Date: 20120131
  Receipt Date: 20120123
  Transmission Date: 20120608
  Serious: Yes (Hospitalization, Congenital Anomaly)
  Sender: FDA-Public Use
  Company Number: FR-JNJFOC-20111205434

PATIENT
  Sex: Male
  Weight: 3.4 kg

DRUGS (7)
  1. LOXAPINE HCL [Concomitant]
     Indication: FOETAL EXPOSURE DURING PREGNANCY
     Route: 064
     Dates: start: 20110418, end: 20110426
  2. SERTRALINE HYDROCHLORIDE [Suspect]
     Indication: FOETAL EXPOSURE DURING PREGNANCY
     Route: 064
     Dates: start: 20100922, end: 20100930
  3. RISPERDAL [Suspect]
     Indication: FOETAL EXPOSURE DURING PREGNANCY
     Route: 064
     Dates: start: 20110101, end: 20110426
  4. RISPERDAL [Suspect]
     Dosage: 7 WEEKS OF AMENORRHEA
     Route: 064
     Dates: end: 20100922
  5. ABILIFY [Suspect]
     Indication: FOETAL EXPOSURE DURING PREGNANCY
     Route: 064
     Dates: start: 20100922, end: 20100930
  6. EFFEXOR [Suspect]
     Indication: FOETAL EXPOSURE DURING PREGNANCY
     Route: 064
     Dates: start: 20100818, end: 20100922
  7. OXAZEPAM [Concomitant]
     Indication: FOETAL EXPOSURE DURING PREGNANCY
     Route: 064
     Dates: start: 20110101, end: 20110426

REACTIONS (2)
  - FEEDING DISORDER NEONATAL [None]
  - ATRIAL SEPTAL DEFECT [None]
